FAERS Safety Report 13560595 (Version 2)
Quarter: 2017Q2

REPORT INFORMATION
  Report Type: Report from Study
  Country: US (occurrence: US)
  Receive Date: 20170518
  Receipt Date: 20170523
  Transmission Date: 20170830
  Serious: No
  Sender: FDA-Public Use
  Company Number: US-AMGEN-USASL2017074882

PATIENT
  Age: 39 Year
  Sex: Female
  Weight: 83.9 kg

DRUGS (2)
  1. ENBREL [Suspect]
     Active Substance: ETANERCEPT
     Indication: PSORIATIC ARTHROPATHY
     Dosage: UNK
     Route: 065
     Dates: start: 201601
  2. ENBREL [Suspect]
     Active Substance: ETANERCEPT
     Indication: PSORIASIS

REACTIONS (7)
  - Weight increased [Unknown]
  - Abdominal distension [Unknown]
  - Muscular weakness [Unknown]
  - Arthralgia [Unknown]
  - Skin discolouration [Unknown]
  - Macule [Unknown]
  - Pain in extremity [Unknown]
